FAERS Safety Report 7458599-7 (Version None)
Quarter: 2011Q2

REPORT INFORMATION
  Report Type: 
  Country: None (occurrence: None)
  Receive Date: 20110504
  Receipt Date: 20110428
  Transmission Date: 20111010
  Serious: Yes (Other)
  Sender: FDA-Public Use
  Company Number: US-PFIZER INC-HQWYE425130JUL03

PATIENT
  Sex: Female
  Weight: 68 kg

DRUGS (5)
  1. PREMARIN [Suspect]
     Indication: HORMONE REPLACEMENT THERAPY
     Dosage: 0.625, UNK
     Route: 048
     Dates: start: 19950601, end: 19990401
  2. MEDROXYPROGESTERONE ACETATE [Suspect]
     Indication: HORMONE REPLACEMENT THERAPY
     Dosage: UNK
     Route: 048
     Dates: start: 19850101, end: 19980101
  3. PROVERA [Suspect]
     Indication: HORMONE REPLACEMENT THERAPY
     Dosage: 2.5, 5 AND 10, UNK
     Route: 048
     Dates: start: 19950601, end: 19990401
  4. SYNTHROID [Concomitant]
     Indication: THYROID DISORDER
     Dosage: 0.88 MG, 1X/DAY
     Dates: start: 19850101
  5. PREMPRO [Suspect]
     Indication: HORMONE REPLACEMENT THERAPY
     Dosage: UNK
     Route: 048

REACTIONS (1)
  - BREAST CANCER RECURRENT [None]
